FAERS Safety Report 19288398 (Version 1)
Quarter: 2021Q2

REPORT INFORMATION
  Report Type: Spontaneous
  Country: GR (occurrence: GR)
  Receive Date: 20210522
  Receipt Date: 20210522
  Transmission Date: 20210717
  Serious: No
  Sender: FDA-Public Use
  Company Number: GR-LUPIN PHARMACEUTICALS INC.-2021-07629

PATIENT
  Age: 13 Year
  Sex: Female

DRUGS (5)
  1. ONDANSETRON [Suspect]
     Active Substance: ONDANSETRON
     Indication: VOMITING
     Dosage: UNK
     Route: 048
  2. ONDANSETRON [Suspect]
     Active Substance: ONDANSETRON
     Dosage: UNK
     Route: 042
  3. POLYETHYLENE GLYCOL [Suspect]
     Active Substance: POLYETHYLENE GLYCOLS
     Indication: CONSTIPATION
     Dosage: UNK
     Route: 048
  4. FOSAPREPITANT [Suspect]
     Active Substance: FOSAPREPITANT
     Indication: CYCLIC VOMITING SYNDROME
     Dosage: 125 MILLIGRAM (ON FIRST DAY)
     Route: 048
  5. FOSAPREPITANT [Suspect]
     Active Substance: FOSAPREPITANT
     Dosage: 85 MILLIGRAM (ON THE SECOND AND THIRD DAYS)
     Route: 048

REACTIONS (5)
  - Fatigue [Unknown]
  - Drug ineffective [Unknown]
  - Headache [Unknown]
  - Off label use [Unknown]
  - Increased appetite [Unknown]
